FAERS Safety Report 22316063 (Version 1)
Quarter: 2023Q2

REPORT INFORMATION
  Report Type: Spontaneous
  Country: US (occurrence: US)
  Receive Date: 20230512
  Receipt Date: 20230512
  Transmission Date: 20230722
  Serious: No
  Sender: FDA-Public Use
  Company Number: US-GALDERMA-US2023006910

PATIENT

DRUGS (5)
  1. PROACTIV MD ADAPALENE ACNE TREATMENT [Suspect]
     Active Substance: ADAPALENE
     Indication: Acne
     Dosage: 1 DOSAGE FORM, BID, ONCE IN THE MORNING AND ONCE IN THE NIGHT AT PEA SIZE
     Route: 061
     Dates: start: 202208
  2. Proactiv MD Ultra Hydrating Moisturizer [Concomitant]
     Indication: Acne
     Dosage: 1 DOSAGE FORM, QD, ONCE A DAY AT PEA SIZE APPLIED ON FOREHEAD, NOSE, CHIN, CHEEKS
     Route: 061
     Dates: start: 202208
  3. Proactiv MD Ultra Gentle Cleanser [Concomitant]
     Indication: Acne
     Dosage: 1 DOSAGE FORM, QD, ONCE A DAY AT PEA SIZE APPLIED ON FOREHEAD, NOSE, CHIN, CHEEKS
     Route: 061
     Dates: start: 202208
  4. PROACTIV ACNE BODY WASH [Concomitant]
     Active Substance: SALICYLIC ACID
     Indication: Acne
     Dosage: 1 DOSAGE FORM, QD, ONCE A DAY AT PEA SIZE APPLIED ON FOREHEAD, NOSE, CHIN, CHEEKS
     Route: 061
     Dates: start: 202208
  5. Proactiv Amazonian Clay Mask [Concomitant]
     Indication: Acne
     Dosage: 1 DOSAGE FORM, QD, ONCE A DAY AT PEA SIZE APPLIED ON FOREHEAD, NOSE, CHIN, CHEEKS
     Route: 061
     Dates: start: 202208

REACTIONS (3)
  - Drug ineffective [Unknown]
  - Inappropriate schedule of product administration [Recovered/Resolved]
  - Overdose [Recovered/Resolved]
